FAERS Safety Report 17175271 (Version 3)
Quarter: 2020Q1

REPORT INFORMATION
  Report Type: Report from Study
  Country: ES (occurrence: ES)
  Receive Date: 20191219
  Receipt Date: 20200324
  Transmission Date: 20200409
  Serious: Yes (Death)
  Sender: FDA-Public Use
  Company Number: ES-MYLANLABS-2019M1126457

PATIENT
  Age: 36 Year
  Sex: Male

DRUGS (4)
  1. SERTRALINE [Suspect]
     Active Substance: SERTRALINE HYDROCHLORIDE
     Indication: MENTAL DISORDER
     Dosage: 0.01 MILLIGRAM PER LITRE
     Route: 065
  2. CLOZAPINE. [Suspect]
     Active Substance: CLOZAPINE
     Dosage: UNK
     Route: 065
  3. CLOTIAPINE [Suspect]
     Active Substance: CLOTHIAPINE
     Indication: MENTAL DISORDER
     Dosage: 0.04 MILLIGRAM PER LITRE
     Route: 065
  4. CLOZAPINE. [Suspect]
     Active Substance: CLOZAPINE
     Indication: MENTAL DISORDER
     Dosage: 0.37 MILLIGRAM PER LITRE
     Route: 065

REACTIONS (2)
  - Toxicity to various agents [Fatal]
  - Sudden death [Fatal]
